FAERS Safety Report 16185572 (Version 1)
Quarter: 2019Q2

REPORT INFORMATION
  Report Type: Spontaneous
  Country: US (occurrence: US)
  Receive Date: 20190411
  Receipt Date: 20190411
  Transmission Date: 20190711
  Serious: No
  Sender: FDA-Public Use
  Company Number: US-SHIRE-US201911459

PATIENT
  Age: 59 Year
  Sex: Female

DRUGS (1)
  1. VYVANSE [Suspect]
     Active Substance: LISDEXAMFETAMINE DIMESYLATE
     Indication: ATTENTION DEFICIT/HYPERACTIVITY DISORDER
     Dosage: 60 MILLIGRAM, 1X/DAY:QD
     Route: 048

REACTIONS (7)
  - Abdominal pain upper [Unknown]
  - Drug ineffective [Unknown]
  - Product physical issue [Unknown]
  - Dysgeusia [Unknown]
  - Product taste abnormal [Unknown]
  - Nausea [Unknown]
  - Palpitations [Recovered/Resolved]
